FAERS Safety Report 17101140 (Version 7)
Quarter: 2020Q1

REPORT INFORMATION
  Report Type: Spontaneous
  Country: US (occurrence: US)
  Receive Date: 20191202
  Receipt Date: 20200116
  Transmission Date: 20200409
  Serious: Yes (Other)
  Sender: FDA-Public Use
  Company Number: US-SA-2019SA329444

PATIENT
  Age: 24 Year
  Sex: Male

DRUGS (4)
  1. TOUJEO [Suspect]
     Active Substance: INSULIN GLARGINE
     Indication: TYPE 1 DIABETES MELLITUS
     Dosage: 46 IU, HS
     Route: 065
  2. TOUJEO [Suspect]
     Active Substance: INSULIN GLARGINE
     Dosage: 30 IU, QD
     Route: 065
  3. TOUJEO [Suspect]
     Active Substance: INSULIN GLARGINE
     Dosage: 40 IU, HS
     Route: 065
  4. NOVOLOG [Concomitant]
     Active Substance: INSULIN ASPART
     Dosage: UNK UNK, TID
     Route: 065

REACTIONS (6)
  - Blood glucose fluctuation [Recovered/Resolved]
  - Blood glucose increased [Recovered/Resolved]
  - Device issue [Recovered/Resolved]
  - Blood glucose decreased [Recovered/Resolved]
  - Diabetes mellitus inadequate control [Recovered/Resolved]
  - Suspected product contamination [Recovered/Resolved]
